FAERS Safety Report 6357005-3 (Version None)
Quarter: 2009Q3

REPORT INFORMATION
  Report Type: 
  Country: None (occurrence: None)
  Receive Date: 20090915
  Receipt Date: 20081125
  Transmission Date: 20100115
  Serious: No
  Sender: FDA-Public Use
  Company Number: US-ABBOTT-08P-163-0489824-00

PATIENT
  Sex: Male

DRUGS (2)
  1. DEPAKOTE [Suspect]
     Indication: MYOCLONIC EPILEPSY
     Dosage: 8 HOURS TID
     Dates: start: 20080801
  2. OTC TOPICAL CREAMS [Concomitant]
     Indication: ECZEMA

REACTIONS (2)
  - MYOCLONIC EPILEPSY [None]
  - PSYCHOMOTOR HYPERACTIVITY [None]
